APPROVED DRUG PRODUCT: NUCYNTA ER
Active Ingredient: TAPENTADOL HYDROCHLORIDE
Strength: EQ 250MG BASE
Dosage Form/Route: TABLET, EXTENDED RELEASE;ORAL
Application: N200533 | Product #005
Applicant: COLLEGIUM PHARMACEUTICAL INC
Approved: Aug 25, 2011 | RLD: Yes | RS: Yes | Type: RX

PATENTS:
Patent 8536130 | Expires: Sep 22, 2028
Patent 11344512 | Expires: Apr 21, 2028
Patent 11344512 | Expires: Apr 21, 2028
Patent 8536130*PED | Expires: Mar 22, 2029
Patent 11344512*PED | Expires: Oct 21, 2028